FAERS Safety Report 4263786-5 (Version None)
Quarter: 2004Q1

REPORT INFORMATION
  Report Type: 
  Country: None (occurrence: None)
  Receive Date: 20040102
  Receipt Date: 20031229
  Transmission Date: 20041129
  Serious: Yes (Hospitalization)
  Sender: FDA-Public Use
  Company Number: US-JNJFOC-20031205145

PATIENT
  Age: 36 Year
  Sex: Female

DRUGS (6)
  1. HALDOL [Suspect]
     Indication: AGITATION
     Dosage: 2 MG, 1 IN 4 HOUR, ORAL
     Route: 048
     Dates: start: 20030610, end: 20031201
  2. CLOZAPINE [Suspect]
     Indication: SCHIZOAFFECTIVE DISORDER
     Dosage: 625 MG, 1 IN 1 DAY, ORAL
     Route: 048
     Dates: start: 20031001, end: 20031201
  3. PREVACID [Concomitant]
  4. FERROUS SUFLATE (FERROUS SULFATE) [Concomitant]
  5. SURPAK (DOCUSATE CALCIUM) [Concomitant]
  6. ESCITALOPRAM OXALATE (ALL OTHER THERAPEUTIC PRODUCTS) [Concomitant]

REACTIONS (2)
  - DRUG INTERACTION [None]
  - HEPATITIS [None]
